FAERS Safety Report 8260466-6 (Version None)
Quarter: 2012Q2

REPORT INFORMATION
  Report Type: 
  Country: None (occurrence: None)
  Receive Date: 20120404
  Receipt Date: 20120326
  Transmission Date: 20120825
  Serious: Yes (Hospitalization)
  Sender: FDA-Public Use
  Company Number: JP-MERCK-1204USA00014

PATIENT
  Age: 40 Year
  Sex: Female

DRUGS (2)
  1. COSOPT [Suspect]
     Indication: GLAUCOMA
     Route: 047
  2. LUMIGAN [Suspect]
     Route: 047

REACTIONS (2)
  - ARRHYTHMIA [None]
  - FEELING ABNORMAL [None]
